FAERS Safety Report 21087321 (Version 2)
Quarter: 2022Q3

REPORT INFORMATION
  Report Type: Spontaneous
  Country: US (occurrence: US)
  Receive Date: 20220715
  Receipt Date: 20220815
  Transmission Date: 20221026
  Serious: Yes (Other)
  Sender: FDA-Public Use
  Company Number: US-009507513-2207USA003590

PATIENT
  Sex: Female

DRUGS (3)
  1. KEYTRUDA [Suspect]
     Active Substance: PEMBROLIZUMAB
     Indication: Endometrial cancer
     Dosage: UNK
  2. LENVATINIB MESYLATE [Suspect]
     Active Substance: LENVATINIB MESYLATE
     Indication: Endometrial cancer
     Dosage: 20 MILLIGRAM, DAILY
     Route: 048
     Dates: start: 20220628
  3. LENVATINIB MESYLATE [Suspect]
     Active Substance: LENVATINIB MESYLATE
     Dosage: 10 MILLIGRAM, DAILY
     Route: 048
     Dates: start: 20220628

REACTIONS (20)
  - Hypothyroidism [Unknown]
  - Flatulence [Recovered/Resolved]
  - Ear pruritus [Recovered/Resolved]
  - Noninfective gingivitis [Unknown]
  - Vitreous floaters [Recovered/Resolved]
  - Neck pain [Unknown]
  - Blood pressure abnormal [Unknown]
  - Road traffic accident [Unknown]
  - Flushing [Unknown]
  - Poor quality sleep [Unknown]
  - Dry mouth [Unknown]
  - Pain in extremity [Unknown]
  - Headache [Unknown]
  - Rash erythematous [Recovered/Resolved]
  - Abdominal pain upper [Unknown]
  - Fatigue [Unknown]
  - Abdominal pain upper [Unknown]
  - Pruritus [Unknown]
  - Pruritus [Recovered/Resolved]
  - Arthralgia [Unknown]

NARRATIVE: CASE EVENT DATE: 20220601
